FAERS Safety Report 8116025-9 (Version None)
Quarter: 2011Q4

REPORT INFORMATION
  Report Type: 
  Country: None (occurrence: None)
  Receive Date: 20111227
  Receipt Date: 20110922
  Transmission Date: 20120403
  Serious: Yes (Hospitalization, Other)
  Sender: FDA-Public Use
  Company Number: PHHY2011US65822

PATIENT
  Age: 43 Year
  Sex: Female

DRUGS (1)
  1. GILENYA [Suspect]
     Indication: MULTIPLE SCLEROSIS
     Dosage: 0.5 MG, QD, ORAL
     Route: 048
     Dates: start: 20110628, end: 20110801

REACTIONS (5)
  - MULTIPLE SCLEROSIS [None]
  - ASTHENIA [None]
  - CONFUSIONAL STATE [None]
  - VISUAL ACUITY REDUCED [None]
  - ABASIA [None]
